FAERS Safety Report 22656259 (Version 1)
Quarter: 2023Q2

REPORT INFORMATION
  Report Type: Spontaneous
  Country: DE (occurrence: DE)
  Receive Date: 20230629
  Receipt Date: 20230629
  Transmission Date: 20230722
  Serious: Yes (Life-Threatening, Hospitalization)
  Sender: FDA-Public Use
  Company Number: DE-BoehringerIngelheim-2023-BI-245755

PATIENT
  Age: 61 Year
  Sex: Male
  Weight: 99 kg

DRUGS (14)
  1. JARDIANCE [Suspect]
     Active Substance: EMPAGLIFLOZIN
     Indication: Type 2 diabetes mellitus
     Dates: end: 20230515
  2. Allopurinol 300 mg Tbl [Concomitant]
     Indication: Product used for unknown indication
     Route: 048
     Dates: end: 20230525
  3. Insulin human (Actrapid) 300 mg I.E./3ml Pen [Concomitant]
     Indication: Product used for unknown indication
     Dosage: MEDICATION AS NEEDED:?} 160 2 IE SUBCUTANEOUS?} 200 4 IE SUBCUTANEOUS?} 240 6 IE SUBCUTANEOUS?MAXIMU
     Route: 058
  4. Apixaban 5 mg Tbl [Concomitant]
     Indication: Product used for unknown indication
     Dosage: 1-0-1
     Route: 048
  5. Beclometason 100 mcg Formotero 6mcg/Hub Dosieraerosol [Concomitant]
     Indication: Product used for unknown indication
     Dosage: 1-0-1 PUFF
     Route: 055
  6. Trospium 15 mg Tbl [Concomitant]
     Indication: Product used for unknown indication
     Dosage: 1-1-1
     Route: 048
  7. Vancomycin 500 mg Amp [Concomitant]
     Indication: Product used for unknown indication
     Dosage: 125-125-125-125 MG
     Route: 048
  8. Bisoprolol 5mg Tbl [Concomitant]
     Indication: Product used for unknown indication
     Dosage: 1-0-1
     Route: 048
  9. Mirtazapin 15 mg Tbl [Concomitant]
     Indication: Product used for unknown indication
     Dosage: 0-0-2
     Route: 048
  10. Calcium 500mg/Colecalciferol 400IE KauTbl [Concomitant]
     Indication: Product used for unknown indication
     Dosage: 1-0-0
     Route: 048
  11. Prednisolon 5 mg Tbl [Concomitant]
     Indication: Product used for unknown indication
     Dosage: 4-2-0?DURING THE COURSE REDUCTION
     Route: 048
  12. Sitagliptin 50 mg Tbl [Concomitant]
     Indication: Product used for unknown indication
     Dosage: 1-0-0
     Route: 048
  13. Tiotropium 18mcg Kps p. Inh. [Concomitant]
     Indication: Product used for unknown indication
     Dosage: 1-0-0
     Route: 055
  14. Tamsulosin 0.4mg Kps [Concomitant]
     Indication: Product used for unknown indication
     Dosage: 0-1-0
     Route: 048

REACTIONS (13)
  - Lactic acidosis [Recovered/Resolved]
  - Dyspnoea at rest [Unknown]
  - Dyspnoea [Unknown]
  - Chest pain [Unknown]
  - Tachypnoea [Unknown]
  - Oedema peripheral [Unknown]
  - Atrial fibrillation [Unknown]
  - Urinary tract infection [Unknown]
  - Bladder spasm [Unknown]
  - Benign prostatic hyperplasia [Unknown]
  - Hypokalaemia [Unknown]
  - Gastroenteritis clostridial [Unknown]
  - Hypertension [Unknown]

NARRATIVE: CASE EVENT DATE: 20230424
